FAERS Safety Report 4458276-0 (Version None)
Quarter: 2004Q3

REPORT INFORMATION
  Report Type: 
  Country: None (occurrence: None)
  Receive Date: 20040917
  Receipt Date: 20040302
  Transmission Date: 20050211
  Serious: Yes (Other)
  Sender: FDA-Public Use
  Company Number: US-JNJFOC-20031203047

PATIENT
  Sex: Female

DRUGS (1)
  1. TOPAMAX [Suspect]
     Indication: WEIGHT DECREASED
     Dosage: ORAL
     Route: 048

REACTIONS (5)
  - ENZYME ABNORMALITY [None]
  - FEELING COLD [None]
  - HEART RATE DECREASED [None]
  - HYPOTENSION [None]
  - WEIGHT DECREASED [None]
